FAERS Safety Report 9707203 (Version 3)
Quarter: 2013Q4

REPORT INFORMATION
  Report Type: Report from Study
  Country: FI (occurrence: FI)
  Receive Date: 20131125
  Receipt Date: 20131216
  Transmission Date: 20140711
  Serious: Yes (Hospitalization)
  Sender: FDA-Public Use
  Company Number: FI-NOVOPROD-392033

PATIENT
  Age: 67 Year
  Sex: Male
  Weight: 111.6 kg

DRUGS (2)
  1. LIRAGLUTIDE FLEXPEN [Suspect]
     Indication: TYPE 2 DIABETES MELLITUS
     Dosage: 1.8 MG, QD
     Route: 058
     Dates: start: 20110331
  2. LIRAGLUTIDE FLEXPEN [Suspect]
     Dosage: 1.8,MG,QD
     Route: 058
     Dates: start: 20110331

REACTIONS (1)
  - Arrhythmia [Recovered/Resolved]
